FAERS Safety Report 9344704 (Version 3)
Quarter: 2013Q3

REPORT INFORMATION
  Report Type: Report from Study
  Country: DE (occurrence: DE)
  Receive Date: 20130612
  Receipt Date: 20130828
  Transmission Date: 20140515
  Serious: Yes (Hospitalization)
  Sender: FDA-Public Use
  Company Number: DE-ABBOTT-13P-062-1102881-00

PATIENT
  Sex: Female
  Weight: 75 kg

DRUGS (10)
  1. HUMIRA [Suspect]
     Indication: RHEUMATOID ARTHRITIS
     Route: 058
     Dates: start: 20120925, end: 20130515
  2. HUMIRA [Suspect]
     Dates: start: 20130716
  3. BRONCHORETARD [Concomitant]
     Indication: ASTHMA
  4. BAMBEC [Concomitant]
     Indication: ASTHMA
  5. ALENDRON ACID [Concomitant]
     Indication: OSTEOPOROSIS
  6. EBASTEL [Concomitant]
     Indication: PRODUCT USED FOR UNKNOWN INDICATION
  7. DEKRISTOL [Concomitant]
     Indication: PRODUCT USED FOR UNKNOWN INDICATION
  8. CORTISONE [Concomitant]
     Indication: RHEUMATOID ARTHRITIS
  9. DICLAC [Concomitant]
     Indication: RHEUMATOID ARTHRITIS
  10. METHOTREXATE [Concomitant]
     Indication: RHEUMATOID ARTHRITIS

REACTIONS (1)
  - Synovial cyst [Unknown]
